FAERS Safety Report 21308746 (Version 1)
Quarter: 2022Q3

REPORT INFORMATION
  Report Type: Spontaneous
  Country: US (occurrence: None)
  Receive Date: 20220908
  Receipt Date: 20220908
  Transmission Date: 20221027
  Serious: Yes (Hospitalization)
  Sender: FDA-Public Use
  Company Number: None

PATIENT
  Age: 75 Year
  Sex: Female

DRUGS (2)
  1. TACROLIMUS [Suspect]
     Active Substance: TACROLIMUS
     Indication: Renal transplant
     Dosage: OTHER FREQUENCY : 3 MG AM 2 MG PM;?
     Dates: start: 20160108
  2. TACROLIMUS [Suspect]
     Active Substance: TACROLIMUS
     Indication: Liver transplant

REACTIONS (4)
  - Abnormal behaviour [None]
  - Feeling abnormal [None]
  - Dehydration [None]
  - Cellulitis [None]

NARRATIVE: CASE EVENT DATE: 20220906
